FAERS Safety Report 8390872-0 (Version None)
Quarter: 2012Q2

REPORT INFORMATION
  Report Type: 
  Country: None (occurrence: None)
  Receive Date: 20120515
  Receipt Date: 20120502
  Transmission Date: 20120825
  Serious: Yes (Other)
  Sender: FDA-Public Use
  Company Number: 2012SA031620

PATIENT
  Age: 54 Year
  Sex: Female

DRUGS (1)
  1. BULLFROG MARATHON MIST SPF 50 / [Suspect]
     Dates: start: 20120314

REACTIONS (8)
  - FEELING ABNORMAL [None]
  - PARAESTHESIA [None]
  - PAIN [None]
  - BURNING SENSATION [None]
  - PRURITUS [None]
  - INSOMNIA [None]
  - NERVOUS SYSTEM DISORDER [None]
  - IMPAIRED WORK ABILITY [None]
